FAERS Safety Report 24153725 (Version 4)
Quarter: 2025Q2

REPORT INFORMATION
  Report Type: Spontaneous
  Country: CA (occurrence: CA)
  Receive Date: 20240730
  Receipt Date: 20250527
  Transmission Date: 20250716
  Serious: Yes (Hospitalization, Other)
  Sender: MYLAN
  Company Number: CA-MYLANLABS-2024M1068215

PATIENT
  Age: 40 Year
  Sex: Male

DRUGS (92)
  1. GABAPENTIN [Suspect]
     Active Substance: GABAPENTIN
     Indication: Schizophrenia
  2. GABAPENTIN [Suspect]
     Active Substance: GABAPENTIN
  3. ZIPRASIDONE [Suspect]
     Active Substance: ZIPRASIDONE
     Indication: Schizophrenia
  4. ZIPRASIDONE [Suspect]
     Active Substance: ZIPRASIDONE
     Indication: Schizophrenia
     Dosage: 100 MILLIGRAM, QD (1 EVERY 1 DAYS)
  5. ZIPRASIDONE [Suspect]
     Active Substance: ZIPRASIDONE
     Indication: Psychotic disorder
  6. VALPROIC ACID [Suspect]
     Active Substance: VALPROIC ACID
     Indication: Schizophrenia
  7. VALPROIC ACID [Suspect]
     Active Substance: VALPROIC ACID
  8. VALPROIC ACID [Suspect]
     Active Substance: VALPROIC ACID
  9. VALPROIC ACID [Suspect]
     Active Substance: VALPROIC ACID
  10. ZIPRASIDONE MESYLATE [Suspect]
     Active Substance: ZIPRASIDONE MESYLATE
     Indication: Schizophrenia
  11. ZIPRASIDONE MESYLATE [Suspect]
     Active Substance: ZIPRASIDONE MESYLATE
     Indication: Product used for unknown indication
  12. CLOZAPINE [Suspect]
     Active Substance: CLOZAPINE
     Indication: Schizophrenia
     Dosage: 350 MILLIGRAM, QD (1 EVERY 1 DAYS)
  13. CLOZAPINE [Suspect]
     Active Substance: CLOZAPINE
     Indication: Psychotic disorder
     Dosage: 350 MILLIGRAM, QD (1 EVERY 1 DAYS)
  14. CLOZAPINE [Suspect]
     Active Substance: CLOZAPINE
     Dosage: 350 MILLIGRAM, QD (1 EVERY 1 DAYS)
  15. ABILIFY [Suspect]
     Active Substance: ARIPIPRAZOLE
     Indication: Schizophrenia
  16. ABILIFY [Suspect]
     Active Substance: ARIPIPRAZOLE
  17. ABILIFY [Suspect]
     Active Substance: ARIPIPRAZOLE
  18. ABILIFY [Suspect]
     Active Substance: ARIPIPRAZOLE
  19. AMISULPRIDE [Suspect]
     Active Substance: AMISULPRIDE
     Indication: Schizophrenia
  20. AMISULPRIDE [Suspect]
     Active Substance: AMISULPRIDE
  21. ARIPIPRAZOLE [Suspect]
     Active Substance: ARIPIPRAZOLE
     Indication: Schizophrenia
  22. ARIPIPRAZOLE [Suspect]
     Active Substance: ARIPIPRAZOLE
  23. ARIPIPRAZOLE [Suspect]
     Active Substance: ARIPIPRAZOLE
  24. ASENAPINE MALEATE [Suspect]
     Active Substance: ASENAPINE MALEATE
     Indication: Schizophrenia
  25. CITALOPRAM HYDROBROMIDE [Suspect]
     Active Substance: CITALOPRAM HYDROBROMIDE
     Indication: Schizophrenia
  26. CITALOPRAM HYDROBROMIDE [Suspect]
     Active Substance: CITALOPRAM HYDROBROMIDE
  27. CITALOPRAM HYDROBROMIDE [Suspect]
     Active Substance: CITALOPRAM HYDROBROMIDE
     Indication: Schizophrenia
  28. CITALOPRAM HYDROBROMIDE [Suspect]
     Active Substance: CITALOPRAM HYDROBROMIDE
  29. CITALOPRAM HYDROBROMIDE [Suspect]
     Active Substance: CITALOPRAM HYDROBROMIDE
  30. CITALOPRAM HYDROBROMIDE [Suspect]
     Active Substance: CITALOPRAM HYDROBROMIDE
  31. CITALOPRAM HYDROBROMIDE [Suspect]
     Active Substance: CITALOPRAM HYDROBROMIDE
     Indication: Schizophrenia
  32. CITALOPRAM HYDROBROMIDE [Suspect]
     Active Substance: CITALOPRAM HYDROBROMIDE
  33. CITALOPRAM HYDROBROMIDE [Suspect]
     Active Substance: CITALOPRAM HYDROBROMIDE
  34. CLOMIPRAMINE [Suspect]
     Active Substance: CLOMIPRAMINE
     Indication: Schizophrenia
  35. FLUOXETINE HYDROCHLORIDE [Suspect]
     Active Substance: FLUOXETINE HYDROCHLORIDE
     Indication: Schizophrenia
  36. FLUOXETINE HYDROCHLORIDE [Suspect]
     Active Substance: FLUOXETINE HYDROCHLORIDE
  37. FLUPENTIXOL [Suspect]
     Active Substance: FLUPENTIXOL
     Indication: Schizophrenia
  38. FLUPENTIXOL [Suspect]
     Active Substance: FLUPENTIXOL
  39. GABAPENTIN [Suspect]
     Active Substance: GABAPENTIN
     Indication: Schizophrenia
  40. GABAPENTIN [Suspect]
     Active Substance: GABAPENTIN
  41. GABAPENTIN [Suspect]
     Active Substance: GABAPENTIN
  42. HALOPERIDOL DECANOATE [Suspect]
     Active Substance: HALOPERIDOL DECANOATE
     Indication: Schizophrenia
  43. LITHIUM [Suspect]
     Active Substance: LITHIUM
     Indication: Schizophrenia
     Dosage: 2400 MILLIGRAM, QD (1 EVERY 1 DAYS)
  44. LITHIUM [Suspect]
     Active Substance: LITHIUM
     Dosage: 1050 MILLIGRAM, QD (1 EVERY 1 DAYS)
  45. LITHIUM [Suspect]
     Active Substance: LITHIUM
     Dosage: 1800 MILLIGRAM, QD (1 EVERY 1 DAYS)
  46. LITHIUM CARBONATE [Suspect]
     Active Substance: LITHIUM CARBONATE
     Indication: Schizophrenia
  47. LITHIUM CARBONATE [Suspect]
     Active Substance: LITHIUM CARBONATE
     Indication: Affective disorder
     Dosage: 1800 MILLIGRAM, QD (1 EVERY 1 DAYS)
  48. LITHIUM CARBONATE [Suspect]
     Active Substance: LITHIUM CARBONATE
     Dosage: 2400 MILLIGRAM, QD (1 EVERY 1 DAYS)
  49. LITHIUM CARBONATE [Suspect]
     Active Substance: LITHIUM CARBONATE
  50. LITHIUM CARBONATE [Suspect]
     Active Substance: LITHIUM CARBONATE
  51. LITHIUM CARBONATE [Suspect]
     Active Substance: LITHIUM CARBONATE
  52. LOXAPINE SUCCINATE [Suspect]
     Active Substance: LOXAPINE SUCCINATE
     Indication: Schizophrenia
  53. LOXAPINE SUCCINATE [Suspect]
     Active Substance: LOXAPINE SUCCINATE
  54. LOXAPINE SUCCINATE [Suspect]
     Active Substance: LOXAPINE SUCCINATE
  55. LOXAPINE SUCCINATE [Suspect]
     Active Substance: LOXAPINE SUCCINATE
  56. LOXAPINE SUCCINATE [Suspect]
     Active Substance: LOXAPINE SUCCINATE
     Indication: Schizophrenia
  57. LOXAPINE SUCCINATE [Suspect]
     Active Substance: LOXAPINE SUCCINATE
  58. LOXAPINE SUCCINATE [Suspect]
     Active Substance: LOXAPINE SUCCINATE
  59. HALOPERIDOL DECANOATE [Suspect]
     Active Substance: HALOPERIDOL DECANOATE
     Indication: Schizophrenia
  60. HALOPERIDOL DECANOATE [Suspect]
     Active Substance: HALOPERIDOL DECANOATE
  61. OLANZAPINE [Suspect]
     Active Substance: OLANZAPINE
     Indication: Schizophrenia
  62. OLANZAPINE [Suspect]
     Active Substance: OLANZAPINE
     Indication: Psychotic disorder
  63. OLANZAPINE [Suspect]
     Active Substance: OLANZAPINE
     Dosage: 40 MILLIGRAM, QD ( 1 EVERY 1 DAYS)
  64. OLANZAPINE [Suspect]
     Active Substance: OLANZAPINE
  65. HALOPERIDOL [Suspect]
     Active Substance: HALOPERIDOL
     Indication: Product used for unknown indication
  66. PERPHENAZINE [Suspect]
     Active Substance: PERPHENAZINE
     Indication: Schizophrenia
  67. PERPHENAZINE [Suspect]
     Active Substance: PERPHENAZINE
     Indication: Psychotic disorder
  68. PERPHENAZINE [Suspect]
     Active Substance: PERPHENAZINE
     Indication: Schizophrenia
  69. PERPHENAZINE [Suspect]
     Active Substance: PERPHENAZINE
     Indication: Psychotic disorder
  70. PERPHENAZINE [Suspect]
     Active Substance: PERPHENAZINE
  71. QUETIAPINE FUMARATE [Suspect]
     Active Substance: QUETIAPINE FUMARATE
     Indication: Schizophrenia
  72. QUETIAPINE FUMARATE [Suspect]
     Active Substance: QUETIAPINE FUMARATE
     Indication: Psychotic disorder
  73. QUETIAPINE FUMARATE [Suspect]
     Active Substance: QUETIAPINE FUMARATE
     Indication: Schizophrenia
     Dosage: 600 MILLIGRAM, QD ( 1 EVERY 1 DAYS)
  74. QUETIAPINE FUMARATE [Suspect]
     Active Substance: QUETIAPINE FUMARATE
     Indication: Psychotic disorder
  75. QUETIAPINE FUMARATE [Suspect]
     Active Substance: QUETIAPINE FUMARATE
     Indication: Schizophrenia
  76. QUETIAPINE FUMARATE [Suspect]
     Active Substance: QUETIAPINE FUMARATE
     Indication: Psychotic disorder
  77. QUETIAPINE FUMARATE [Suspect]
     Active Substance: QUETIAPINE FUMARATE
     Indication: Schizophrenia
     Dosage: 600 MILLIGRAM, QD (1 EVERY 1 DAYS)
  78. QUETIAPINE FUMARATE [Suspect]
     Active Substance: QUETIAPINE FUMARATE
     Indication: Psychotic disorder
  79. RISPERIDONE [Suspect]
     Active Substance: RISPERIDONE
     Indication: Schizophrenia
     Dosage: 8 MILLIGRAM, QD (1 EVERY 1 DAYS)
  80. RISPERIDONE [Suspect]
     Active Substance: RISPERIDONE
     Indication: Psychotic disorder
  81. RISPERIDONE [Suspect]
     Active Substance: RISPERIDONE
     Dosage: 8 MILLIGRAM, QD (1 EVERY 1 DAYS)
  82. RISPERIDONE [Suspect]
     Active Substance: RISPERIDONE
  83. SAPHRIS [Suspect]
     Active Substance: ASENAPINE MALEATE
     Indication: Schizophrenia
  84. SAPHRIS [Suspect]
     Active Substance: ASENAPINE MALEATE
  85. THIORIDAZINE [Suspect]
     Active Substance: THIORIDAZINE
     Indication: Schizophrenia
  86. THIORIDAZINE [Suspect]
     Active Substance: THIORIDAZINE
     Indication: Psychotic disorder
  87. THIORIDAZINE [Suspect]
     Active Substance: THIORIDAZINE
     Indication: Schizophrenia
  88. THIORIDAZINE [Suspect]
     Active Substance: THIORIDAZINE
     Indication: Psychotic disorder
  89. TRIFLUOPERAZINE HYDROCHLORIDE [Suspect]
     Active Substance: TRIFLUOPERAZINE HYDROCHLORIDE
     Indication: Schizophrenia
  90. TRIFLUOPERAZINE HYDROCHLORIDE [Suspect]
     Active Substance: TRIFLUOPERAZINE HYDROCHLORIDE
  91. TRIFLUOPERAZINE [Concomitant]
     Active Substance: TRIFLUOPERAZINE HYDROCHLORIDE
  92. LOXAPINE SUCCINATE [Concomitant]
     Active Substance: LOXAPINE SUCCINATE

REACTIONS (22)
  - Antipsychotic drug level below therapeutic [Unknown]
  - Disinhibition [Unknown]
  - Euphoric mood [Unknown]
  - Dyslipidaemia [Unknown]
  - Irritability [Unknown]
  - Obsessive-compulsive disorder [Unknown]
  - Schizoaffective disorder [Unknown]
  - Suicide attempt [Unknown]
  - Toxicity to various agents [Unknown]
  - Akathisia [Unknown]
  - Leukaemia [Unknown]
  - Hypertension [Unknown]
  - Leukopenia [Unknown]
  - Obesity [Unknown]
  - Weight increased [Unknown]
  - Increased appetite [Unknown]
  - Prescribed overdose [Unknown]
  - Therapeutic product effect variable [Unknown]
  - Drug ineffective [Unknown]
  - Therapeutic product effect incomplete [Unknown]
  - Product use in unapproved indication [Unknown]
  - Off label use [Unknown]
